FAERS Safety Report 6929271-4 (Version None)
Quarter: 2010Q3

REPORT INFORMATION
  Report Type: 
  Country: None (occurrence: None)
  Receive Date: 20100811
  Receipt Date: 20100803
  Transmission Date: 20110219
  Serious: Yes (Hospitalization)
  Sender: FDA-Public Use
  Company Number: 2008JP003666

PATIENT
  Age: 42 Year
  Sex: Female
  Weight: 88.1 kg

DRUGS (26)
  1. TACROLIMUS [Suspect]
     Indication: LUPUS NEPHRITIS
     Dosage: 3 MG, D, ORAL
     Route: 048
     Dates: start: 20070628
  2. BUMETANIDE [Suspect]
     Indication: LUPUS NEPHRITIS
     Dosage: 1 MG, D, ORAL
     Route: 048
     Dates: start: 20070627, end: 20070719
  3. LASIX [Suspect]
     Indication: LUPUS NEPHRITIS
     Dosage: 20 MG, D, ORAL
     Route: 048
     Dates: end: 20070731
  4. ALDACTONE [Suspect]
     Indication: LUPUS NEPHRITIS
     Dosage: 25 MG, D, ORAL
     Route: 048
     Dates: end: 20070731
  5. PREDNISOLONE [Suspect]
     Indication: LUPUS NEPHRITIS
     Dosage: 5 MG, D, ORAL
     Route: 048
  6. HALOPERIDOL [Suspect]
     Indication: LUPUS NEPHRITIS
     Dosage: 0.75 MG, D, ORAL
     Route: 048
  7. PAXIL [Suspect]
     Dosage: 20 MG,D, ORAL
     Route: 048
  8. DIOVAN [Suspect]
     Dosage: 80 MG, D, ORAL, 40 MG, D, ORAL
     Route: 048
     Dates: end: 20070729
  9. CELECOXIB [Suspect]
     Dosage: 200 MG, D, ORAL
     Route: 048
     Dates: start: 20081212, end: 20081225
  10. TOLEDOMIN (MILNACIPRAN HYDROCHLORIDE) PER ORAL NOS [Suspect]
     Dosage: 100 MG, D, ORAL
     Route: 048
     Dates: start: 20081225
  11. VALPROATE SODIUM [Suspect]
     Dosage: 400 MG, D, ORAL
     Route: 048
     Dates: start: 20080708
  12. ONEALFA (ALFACALCIDOL) [Concomitant]
  13. LOSARTAN POTASSIUM [Concomitant]
  14. TIZANIDINE HCL [Concomitant]
  15. PUIRSENNID (SENNOSIDE AB) [Concomitant]
  16. NITRAZEPAM [Concomitant]
  17. LENDORM [Concomitant]
  18. MS ONSHIPPU (MS ONSHIPPU) [Concomitant]
  19. HALCION [Concomitant]
  20. NOVORAPID FLEXPEN (INSULIN ASPART) [Concomitant]
  21. SELBEX (TEPRENONE) [Concomitant]
  22. PRIMPERAN TAB [Concomitant]
  23. NEUROTROPIN (THIAMINE HYDROCHLORIDE) [Concomitant]
  24. ALOSENN (ACHILLEA  MILLEFOLIUM, RUBIA TINCTORUM ROOT TINCTURE, SENNA A [Concomitant]
  25. GABAPEN (GABAPENTIN) [Concomitant]
  26. GASCON (DIMETICONE) [Concomitant]

REACTIONS (15)
  - ABDOMINAL DISTENSION [None]
  - ABDOMINAL PAIN [None]
  - ALANINE AMINOTRANSFERASE INCREASED [None]
  - ASPARTATE AMINOTRANSFERASE INCREASED [None]
  - BLOOD CREATININE INCREASED [None]
  - BLOOD PRESSURE DECREASED [None]
  - BLOOD URIC ACID INCREASED [None]
  - CONDITION AGGRAVATED [None]
  - CONSTIPATION [None]
  - DIABETES MELLITUS [None]
  - FIBROMYALGIA [None]
  - GASTROENTERITIS [None]
  - GLYCOSYLATED HAEMOGLOBIN INCREASED [None]
  - NASOPHARYNGITIS [None]
  - OEDEMA [None]
